FAERS Safety Report 18100562 (Version 2)
Quarter: 2020Q4

REPORT INFORMATION
  Report Type: Other
  Country: DE (occurrence: DE)
  Receive Date: 20200731
  Receipt Date: 20201211
  Transmission Date: 20210113
  Serious: Yes (Life-Threatening, Hospitalization)
  Sender: FDA-Public Use
  Company Number: DE-GE HEALTHCARE LIFE SCIENCES-2020CSU003259

PATIENT

DRUGS (10)
  1. VISIPAQUE [Suspect]
     Active Substance: IODIXANOL
     Indication: DIAGNOSTIC PROCEDURE
     Dosage: 5 ML 1:1 DILUTION, ONCE
     Route: 048
     Dates: start: 20200623, end: 20200623
  2. GENTAMYCIN [GENTAMICIN SULFATE] [Concomitant]
     Active Substance: GENTAMICIN SULFATE
     Indication: INFECTION
     Dosage: 3.5 MG
     Route: 042
  3. CAFFEINE CITRATE. [Concomitant]
     Active Substance: CAFFEINE CITRATE
     Indication: INFANTILE APNOEA
     Dosage: 5 MG
     Route: 042
  4. AMPICILLIN [Concomitant]
     Active Substance: AMPICILLIN
     Indication: INFECTION
     Dosage: 50 MG
     Route: 042
  5. VISIPAQUE [Suspect]
     Active Substance: IODIXANOL
     Indication: GASTROINTESTINAL DISORDER
  6. VISIPAQUE [Suspect]
     Active Substance: IODIXANOL
     Indication: HYDRONEPHROSIS
  7. VISIPAQUE [Suspect]
     Active Substance: IODIXANOL
     Indication: NEPHROSTOMY
  8. VISIPAQUE [Suspect]
     Active Substance: IODIXANOL
     Indication: HYDRONEPHROSIS
  9. VISIPAQUE [Suspect]
     Active Substance: IODIXANOL
     Indication: IMAGING PROCEDURE
     Dosage: 8 ML (PYELON UNDILUTED), ONCE
     Route: 065
     Dates: start: 20200626, end: 20200626
  10. CLONIDIN [Concomitant]
     Active Substance: CLONIDINE
     Indication: DRUG WITHDRAWAL SYNDROME NEONATAL
     Dosage: 0.8 ?G/KG, EVERY 1 HOUR
     Route: 041

REACTIONS (2)
  - Toxicity to various agents [Recovered/Resolved]
  - Methaemoglobinaemia [Recovered/Resolved]

NARRATIVE: CASE EVENT DATE: 20200626
